FAERS Safety Report 9420365 (Version 1)
Quarter: 2013Q3

REPORT INFORMATION
  Report Type: Spontaneous
  Country: US (occurrence: US)
  Receive Date: 20130725
  Receipt Date: 20130725
  Transmission Date: 20140515
  Serious: No
  Sender: FDA-Public Use
  Company Number: US-ABBOTT-13P-163-1040564-00

PATIENT
  Age: 84 Year
  Sex: 0
  Weight: 48.58 kg

DRUGS (3)
  1. SYNTHROID [Suspect]
     Indication: THYROID DISORDER
     Dosage: 88 MCG DAILY
  2. EFFEXOR [Suspect]
     Indication: DEPRESSION
     Dosage: 75 MG DAILY
     Dates: start: 20121128, end: 201212
  3. ZOLOFT [Suspect]
     Indication: DEPRESSION
     Dosage: DAILY
     Dates: end: 20121127

REACTIONS (13)
  - Suicidal ideation [Not Recovered/Not Resolved]
  - Mental impairment [Not Recovered/Not Resolved]
  - Nausea [Not Recovered/Not Resolved]
  - Feeling jittery [Not Recovered/Not Resolved]
  - Aphagia [Not Recovered/Not Resolved]
  - Drug administration error [Unknown]
  - Depression [Unknown]
  - Drug administration error [Unknown]
  - Dizziness [Not Recovered/Not Resolved]
  - Insomnia [Not Recovered/Not Resolved]
  - Weight decreased [Not Recovered/Not Resolved]
  - Anxiety [Not Recovered/Not Resolved]
  - Nervousness [Not Recovered/Not Resolved]
